FAERS Safety Report 21599233 (Version 1)
Quarter: 2022Q4

REPORT INFORMATION
  Report Type: Spontaneous
  Country: US (occurrence: None)
  Receive Date: 20221114
  Receipt Date: 20221114
  Transmission Date: 20230113
  Serious: No
  Sender: FDA-Public Use
  Company Number: None

PATIENT
  Age: 71 Year
  Sex: Female

DRUGS (1)
  1. GLATIRAMER ACETATE [Suspect]
     Active Substance: GLATIRAMER ACETATE
     Dosage: OTHER FREQUENCY : OTHER;?
     Route: 058

REACTIONS (5)
  - Fatigue [None]
  - Heart rate increased [None]
  - Blood pressure increased [None]
  - Anxiety [None]
  - Vitamin B12 decreased [None]

NARRATIVE: CASE EVENT DATE: 20221114
